FAERS Safety Report 8575123-6 (Version None)
Quarter: 2012Q2

REPORT INFORMATION
  Report Type: 
  Country: None (occurrence: None)
  Receive Date: 20120423
  Receipt Date: 20090717
  Transmission Date: 20120825
  Serious: Yes (Other)
  Sender: FDA-Public Use
  Company Number: PHEH2009US07903

PATIENT
  Sex: Male

DRUGS (1)
  1. EXJADE [Suspect]
     Dosage: 1875 MG DAILY, ORAL
     Route: 048

REACTIONS (3)
  - HEPATIC ENZYME INCREASED [None]
  - ABDOMINAL PAIN [None]
  - RASH [None]
